FAERS Safety Report 22945009 (Version 2)
Quarter: 2023Q4

REPORT INFORMATION
  Report Type: Report from Study
  Country: FR (occurrence: FR)
  Receive Date: 20230914
  Receipt Date: 20231208
  Transmission Date: 20240109
  Serious: Yes (Other)
  Sender: FDA-Public Use
  Company Number: FR-LEO Pharma-362601

PATIENT
  Age: 52 Year
  Sex: Male
  Weight: 59 kg

DRUGS (4)
  1. ADBRY [Suspect]
     Active Substance: TRALOKINUMAB-LDRM
     Indication: Dermatitis atopic
     Dosage: ONCE PER LABEL, CHANGING TO MAINTENANCE DOSE
     Route: 058
     Dates: start: 20230209, end: 20230209
  2. ADBRY [Suspect]
     Active Substance: TRALOKINUMAB-LDRM
     Indication: Dermatitis atopic
     Route: 058
     Dates: start: 202302, end: 20230818
  3. ADBRY [Suspect]
     Active Substance: TRALOKINUMAB-LDRM
     Indication: Dermatitis atopic
     Dosage: REASON FOR DOSAGE CHANGE: DISEASE IMPROVEMENT
     Route: 058
     Dates: start: 202308, end: 202311
  4. ADBRY [Suspect]
     Active Substance: TRALOKINUMAB-LDRM
     Indication: Dermatitis atopic
     Dosage: ONGOING
     Route: 058
     Dates: start: 202311

REACTIONS (1)
  - Atopic keratoconjunctivitis [Not Recovered/Not Resolved]

NARRATIVE: CASE EVENT DATE: 20230519
